FAERS Safety Report 17507745 (Version 1)
Quarter: 2020Q1

REPORT INFORMATION
  Report Type: Spontaneous
  Country: CA (occurrence: CA)
  Receive Date: 20200305
  Receipt Date: 20200305
  Transmission Date: 20200409
  Serious: Yes (Hospitalization, Other)
  Sender: FDA-Public Use
  Company Number: CA-009507513-1406CAN013820

PATIENT
  Age: 66 Year
  Sex: Female
  Weight: 68.03 kg

DRUGS (10)
  1. COVERSYL (PERINDOPRIL ARGININE) [Concomitant]
     Active Substance: PERINDOPRIL ARGININE
     Dosage: 1 TABLET IN THE MORNING AND 1 TABLET IN THE NIGHT
     Route: 048
  2. WARFARIN [Concomitant]
     Active Substance: WARFARIN
     Dosage: 1 TABLET IN THE MIDDLE OF THE DAY
     Route: 048
  3. SPIRONOLACTONE. [Concomitant]
     Active Substance: SPIRONOLACTONE
     Dosage: 1 TABLET IN THE MORNING
     Route: 048
  4. ELTROXIN [Concomitant]
     Active Substance: LEVOTHYROXINE
     Dosage: 1 TABLET IN THE MORNING
     Route: 048
  5. IMOVANE [Concomitant]
     Active Substance: ZOPICLONE
     Dosage: 2 TABLETS IN THE EVENING
     Route: 048
  6. EZETROL [Suspect]
     Active Substance: EZETIMIBE
     Indication: CARDIAC DISORDER
     Dosage: 10 MG, DAILY
     Route: 048
     Dates: start: 201208, end: 20200201
  7. EZETROL [Suspect]
     Active Substance: EZETIMIBE
     Indication: HYPERCHOLESTEROLAEMIA
  8. METOPROLOL. [Concomitant]
     Active Substance: METOPROLOL
     Dosage: 1/2 TABLET IN THE MORNING AND 1/2 TABLET IN THE NIGHT
     Route: 048
  9. CYANOCOBALAMIN. [Concomitant]
     Active Substance: CYANOCOBALAMIN
     Dosage: 1 TABLET PER DAY
     Route: 048
  10. TYLENOL EXTRA STRENGTH [Concomitant]
     Active Substance: ACETAMINOPHEN
     Dosage: UP TO 8 TABLETS A DAY
     Route: 048

REACTIONS (13)
  - Myocardial infarction [Recovering/Resolving]
  - Dizziness [Unknown]
  - Cerebrovascular accident [Recovering/Resolving]
  - Rhinorrhoea [Recovered/Resolved]
  - Musculoskeletal disorder [Recovering/Resolving]
  - Heart valve stenosis [Not Recovered/Not Resolved]
  - Dyspnoea [Recovered/Resolved]
  - Influenza [Unknown]
  - Feeling abnormal [Recovered/Resolved]
  - Facial paralysis [Recovering/Resolving]
  - Arterial occlusive disease [Not Recovered/Not Resolved]
  - Influenza [Not Recovered/Not Resolved]
  - Cough [Recovered/Resolved]

NARRATIVE: CASE EVENT DATE: 201206
